FAERS Safety Report 19847717 (Version 1)
Quarter: 2021Q3

REPORT INFORMATION
  Report Type: Report from Study
  Country: US (occurrence: US)
  Receive Date: 20210917
  Receipt Date: 20210917
  Transmission Date: 20211014
  Serious: Yes (Other)
  Sender: FDA-Public Use
  Company Number: US-JAZZ-2021-US-017114

PATIENT
  Sex: Female

DRUGS (16)
  1. XYREM [Suspect]
     Active Substance: SODIUM OXYBATE
     Indication: NARCOLEPSY
     Dosage: 2.25 GRAM, BID
     Route: 048
     Dates: start: 201912, end: 201912
  2. XYREM [Suspect]
     Active Substance: SODIUM OXYBATE
     Dosage: DOSE ADJUSTMENT
     Route: 048
     Dates: start: 201912, end: 202012
  3. XYREM [Suspect]
     Active Substance: SODIUM OXYBATE
     Dosage: 2 GRAM, BID
     Route: 048
     Dates: start: 202012, end: 202103
  4. CLEOCIN [CLINDAMYCIN HYDROCHLORIDE] [Concomitant]
     Active Substance: CLINDAMYCIN HYDROCHLORIDE
     Indication: PAIN
  5. TYLENOL EXTRA STRENGTH [Concomitant]
     Active Substance: ACETAMINOPHEN
     Indication: PAIN
  6. MAGNESIUM GLUCONATE [Concomitant]
     Active Substance: MAGNESIUM GLUCONATE
     Indication: PAIN
  7. MELATONIN [Concomitant]
     Active Substance: MELATONIN
     Indication: PAIN
  8. VITAMIN C [Concomitant]
     Active Substance: ASCORBIC ACID
     Indication: PAIN
  9. ZYRTEC [Concomitant]
     Active Substance: CETIRIZINE HYDROCHLORIDE
     Indication: PAIN
  10. PROBIOTIC ACIDOPHILUS [LACTOBACILLUS ACIDOPHILUS] [Concomitant]
     Indication: PAIN
  11. BONIVA [Concomitant]
     Active Substance: IBANDRONATE SODIUM
     Indication: PAIN
  12. CALCIUM CARBONATE. [Concomitant]
     Active Substance: CALCIUM CARBONATE
     Indication: PAIN
  13. ADVIL [Concomitant]
     Active Substance: IBUPROFEN
     Indication: PAIN
  14. MYRBETRIQ [Concomitant]
     Active Substance: MIRABEGRON
     Indication: PAIN
  15. CALCIUM 600+D3 [Concomitant]
     Active Substance: CALCIUM CARBONATE\VITAMIN D
     Indication: PAIN
  16. PROVIGIL [Concomitant]
     Active Substance: MODAFINIL
     Indication: PAIN

REACTIONS (2)
  - Thrombosis [Unknown]
  - Cardiac myxoma [Unknown]
